FAERS Safety Report 4715739-8 (Version None)
Quarter: 2005Q2

REPORT INFORMATION
  Report Type: 
  Country: None (occurrence: None)
  Receive Date: 20050629
  Receipt Date: 20050401
  Transmission Date: 20051028
  Serious: No
  Sender: FDA-Public Use
  Company Number: SP00423

PATIENT
  Age: 49 Year
  Sex: Female

DRUGS (9)
  1. XIFAXAN [Suspect]
     Indication: CROHN'S DISEASE
     Dosage: 200MG/TID, ORAL
     Route: 048
     Dates: start: 20050224, end: 20050331
  2. XIFAXAN [Suspect]
     Indication: CROHN'S DISEASE
     Dosage: UNKNOWN, ORAL
     Route: 048
     Dates: start: 20050404
  3. AZATHIOPRINE [Concomitant]
  4. VICODIN [Concomitant]
  5. XANAX [Concomitant]
  6. ZOLOFT [Concomitant]
  7. DICYCLOMINE [Concomitant]
  8. FISH OIL [Concomitant]
  9. PROBOTICS [Concomitant]

REACTIONS (4)
  - CONDITION AGGRAVATED [None]
  - DIARRHOEA [None]
  - GASTRIC DISORDER [None]
  - NAUSEA [None]
